FAERS Safety Report 22115141 (Version 2)
Quarter: 2023Q2

REPORT INFORMATION
  Report Type: Spontaneous
  Country: US (occurrence: US)
  Receive Date: 20230320
  Receipt Date: 20230503
  Transmission Date: 20230722
  Serious: Yes (Other)
  Sender: FDA-Public Use
  Company Number: US-PFIZER INC-PV202300050922

PATIENT
  Age: 62 Year
  Sex: Female

DRUGS (1)
  1. EUCRISA [Suspect]
     Active Substance: CRISABOROLE
     Indication: Eczema
     Dosage: UNK, AS NEEDED (TWICE DAILY TO HANDS AS NEEDED)
     Route: 061

REACTIONS (2)
  - Neoplasm malignant [Unknown]
  - Blister [Unknown]
